FAERS Safety Report 4486514-7 (Version None)
Quarter: 2004Q4

REPORT INFORMATION
  Report Type: 
  Country: None (occurrence: None)
  Receive Date: 20041021
  Receipt Date: 20041007
  Transmission Date: 20050328
  Serious: Yes (Other)
  Sender: FDA-Public Use
  Company Number: 2004237604IT

PATIENT

DRUGS (1)
  1. FARMORUBICINA (EPIRUBICIN HYDROCHLORIDE) POWDER, STERILE [Suspect]
     Indication: BREAST CANCER
     Dosage: CYCLE 3

REACTIONS (2)
  - CONGENITAL VESICOURETERIC REFLUX [None]
  - DRUG EXPOSURE DURING PREGNANCY [None]
